FAERS Safety Report 9099331 (Version 1)
Quarter: 2013Q1

REPORT INFORMATION
  Report Type: Spontaneous
  Country: US (occurrence: US)
  Receive Date: 20130214
  Receipt Date: 20130214
  Transmission Date: 20140127
  Serious: No
  Sender: FDA-Public Use
  Company Number: US-COVIDIEN/TYCO HEALTHCARE/MALLINCKRODT-T201203938

PATIENT
  Age: 73 Year
  Sex: Male

DRUGS (4)
  1. FENTANYL TRANSDERMAL SYSTEM [Suspect]
     Indication: PAIN
     Dosage: 100 UG/HR, UNK
     Route: 062
     Dates: start: 20121106
  2. FENTANYL TRANSDERMAL SYSTEM [Suspect]
     Dosage: 75 UG/HR, UNK
     Route: 062
     Dates: start: 201210, end: 20121105
  3. OXYCONTIN [Concomitant]
     Dosage: UNK
  4. OXYCODONE [Concomitant]
     Dosage: UNK

REACTIONS (2)
  - Faecal incontinence [Unknown]
  - Drug effect decreased [Recovered/Resolved]
